FAERS Safety Report 8524451-9 (Version None)
Quarter: 2012Q3

REPORT INFORMATION
  Report Type: 
  Country: None (occurrence: None)
  Receive Date: 20120720
  Receipt Date: 20120718
  Transmission Date: 20120928
  Serious: No
  Sender: FDA-Public Use
  Company Number: US-PFIZER INC-2012174252

PATIENT
  Sex: Female

DRUGS (2)
  1. CELEBREX [Suspect]
     Dosage: 200 MG, 2X/DAY FOR 6 DAYS
  2. ALEVE [Suspect]
     Dosage: UNK, ONE DAY

REACTIONS (3)
  - DRUG INEFFECTIVE [None]
  - OSTEOARTHRITIS [None]
  - ARTHROPATHY [None]
